FAERS Safety Report 11126772 (Version 1)
Quarter: 2015Q2

REPORT INFORMATION
  Report Type: Spontaneous
  Country: US (occurrence: US)
  Receive Date: 20150520
  Receipt Date: 20150520
  Transmission Date: 20150821
  Serious: Yes (Hospitalization)
  Sender: FDA-Public Use
  Company Number: US-EISAI MEDICAL RESEARCH-EC-2015-006870

PATIENT
  Age: 86 Year
  Sex: Female
  Weight: 49.9 kg

DRUGS (11)
  1. COREG [Concomitant]
     Active Substance: CARVEDILOL
  2. PREDNISONE. [Concomitant]
     Active Substance: PREDNISONE
  3. SYNTHROID [Concomitant]
     Active Substance: LEVOTHYROXINE SODIUM
  4. SIMVASTATIN. [Concomitant]
     Active Substance: SIMVASTATIN
  5. SPIRIVA [Concomitant]
     Active Substance: TIOTROPIUM BROMIDE MONOHYDRATE
  6. LENVIMA [Suspect]
     Active Substance: LENVATINIB
     Route: 048
     Dates: start: 20150429, end: 20150508
  7. LENVIMA [Suspect]
     Active Substance: LENVATINIB
     Indication: THYROID CANCER METASTATIC
     Route: 048
     Dates: start: 20150402, end: 201504
  8. OMEPRAZOLE. [Concomitant]
     Active Substance: OMEPRAZOLE
  9. ASPIRIN. [Concomitant]
     Active Substance: ASPIRIN
  10. LENVIMA [Suspect]
     Active Substance: LENVATINIB
     Route: 048
     Dates: start: 20150424, end: 20150428
  11. LASIX [Concomitant]
     Active Substance: FUROSEMIDE

REACTIONS (5)
  - Hypertension [Unknown]
  - Dehydration [Recovering/Resolving]
  - Hypovolaemia [Recovering/Resolving]
  - Failure to thrive [Unknown]
  - Decreased appetite [Unknown]

NARRATIVE: CASE EVENT DATE: 20150429
